FAERS Safety Report 21025462 (Version 1)
Quarter: 2022Q3

REPORT INFORMATION
  Report Type: Spontaneous
  Country: FR (occurrence: FR)
  Receive Date: 20220630
  Receipt Date: 20220630
  Transmission Date: 20221026
  Serious: Yes (Other)
  Sender: FDA-Public Use
  Company Number: FR-NOVARTISPH-NVSC2022FR145115

PATIENT
  Sex: Male

DRUGS (95)
  1. ACETAMINOPHEN [Suspect]
     Active Substance: ACETAMINOPHEN
     Indication: Product used for unknown indication
     Route: 065
     Dates: start: 20160616
  2. AMOXICILLIN\CLAVULANIC ACID [Suspect]
     Active Substance: AMOXICILLIN\CLAVULANIC ACID
     Indication: Product used for unknown indication
     Dosage: 1 DF MORNING, NOON AND EVENING
     Route: 065
     Dates: start: 20160616
  3. ZOPICLONE [Suspect]
     Active Substance: ZOPICLONE
     Indication: Product used for unknown indication
     Dosage: 1 TABLET BEFORE BEDTIME. A RENOUVELER 6/MOIS
     Route: 065
     Dates: start: 20201228
  4. ZOPICLONE [Suspect]
     Active Substance: ZOPICLONE
     Dosage: 1 DOSAGE FORM BEFORE BEDTIME. A R 3/FOIS
     Route: 065
     Dates: start: 20210930
  5. ZOPICLONE [Suspect]
     Active Substance: ZOPICLONE
     Dosage: 1 TABLET BEFORE BEDTIME
     Route: 065
     Dates: start: 20220110
  6. ZOPICLONE [Suspect]
     Active Substance: ZOPICLONE
     Dosage: 1 DOSAGE FORM BEFORE BEDTIME. A R 2/FOIS
     Route: 065
     Dates: start: 20220121
  7. ZOPICLONE [Suspect]
     Active Substance: ZOPICLONE
     Dosage: 1 DOSAGE FORM BEFORE BEDTIME. A RENOUVELER 2/FOIS
     Route: 065
     Dates: start: 20220408
  8. DAFALGAN [Suspect]
     Active Substance: ACETAMINOPHEN
     Indication: Product used for unknown indication
     Dosage: 1G 3 TIMES A DAY
     Route: 065
     Dates: start: 20160704
  9. DAFALGAN [Suspect]
     Active Substance: ACETAMINOPHEN
     Dosage: 1G 3 TIMES A DAY
     Route: 065
     Dates: start: 20160722
  10. DAFALGAN [Suspect]
     Active Substance: ACETAMINOPHEN
     Dosage: 1G 3 TIMES A DAY
     Route: 065
     Dates: start: 20160818
  11. DAFALGAN [Suspect]
     Active Substance: ACETAMINOPHEN
     Dosage: 1G 3 TIMES A DAY
     Route: 065
     Dates: start: 20170529
  12. DOLIPRANE [Suspect]
     Active Substance: ACETAMINOPHEN
     Indication: Product used for unknown indication
     Dosage: 2 CAPSULES 4 TIMES A DAY
     Route: 065
     Dates: start: 20160622
  13. DOLIPRANE [Suspect]
     Active Substance: ACETAMINOPHEN
     Dosage: 1 GRAM 4 TIMES A DAY
     Route: 065
     Dates: start: 20200818
  14. DOLIPRANE [Suspect]
     Active Substance: ACETAMINOPHEN
     Dosage: 1 G 6 TIMES A MONTH
     Route: 065
     Dates: start: 20200917
  15. DOLIPRANE [Suspect]
     Active Substance: ACETAMINOPHEN
     Dosage: 1 G 4 TIMES A DAY
     Route: 065
     Dates: start: 20201228
  16. DOLIPRANE [Suspect]
     Active Substance: ACETAMINOPHEN
     Dosage: 1 G 4 TIMES A DAY. A RENOUVELER 6 MOIS
     Route: 065
     Dates: start: 20210421
  17. DOLIPRANE [Suspect]
     Active Substance: ACETAMINOPHEN
     Dosage: 1 G 4 TIMES A DAY. A RENOUVELER 6 MOIS
     Route: 065
     Dates: start: 20210917
  18. DOLIPRANE [Suspect]
     Active Substance: ACETAMINOPHEN
     Dosage: 1 G 4 TIMES A DAY. A RENOUVELER 6 MOIS
     Route: 065
     Dates: start: 20220201
  19. LAMALINE (ACETAMINOPHEN\CAFFEINE\OPIUM) [Suspect]
     Active Substance: ACETAMINOPHEN\CAFFEINE\OPIUM
     Indication: Product used for unknown indication
     Dosage: 4 CAPSULES/DIE
     Route: 065
     Dates: start: 20161208
  20. TOPIRAMATE [Suspect]
     Active Substance: TOPIRAMATE
     Indication: Product used for unknown indication
     Dosage: 15 MG IN THE MORNING AND 15 MG IN THE EVENING A R 3 FOIS.
     Route: 065
     Dates: start: 20200120
  21. CYAMEMAZINE [Suspect]
     Active Substance: CYAMEMAZINE
     Indication: Product used for unknown indication
     Dosage: 30 DROPS IN THE EVENING
     Route: 065
     Dates: start: 20210421
  22. PROPRANOLOL [Suspect]
     Active Substance: PROPRANOLOL HYDROCHLORIDE
     Indication: Product used for unknown indication
     Dosage: 0.5-1 DOSAGE FORM IN THE MORNING
     Route: 065
     Dates: start: 20201228
  23. PROPRANOLOL [Suspect]
     Active Substance: PROPRANOLOL HYDROCHLORIDE
     Dosage: 0.5-1 DOSAGE FORM IN THE MORNING
     Route: 065
     Dates: start: 20210917
  24. PROPRANOLOL [Suspect]
     Active Substance: PROPRANOLOL HYDROCHLORIDE
     Dosage: 1 TABLET IN THE MORNING
     Route: 065
     Dates: start: 20220201
  25. PIROXICAM BETADEX [Suspect]
     Active Substance: PIROXICAM BETADEX
     Indication: Product used for unknown indication
     Dosage: 1 TABLET/DIE
     Route: 065
     Dates: start: 20160722
  26. PIROXICAM BETADEX [Suspect]
     Active Substance: PIROXICAM BETADEX
     Dosage: 1 TABLET/DIE
     Route: 065
     Dates: start: 20160704
  27. AUGMENTIN [Suspect]
     Active Substance: AMOXICILLIN\CLAVULANATE POTASSIUM
     Indication: Product used for unknown indication
     Dosage: SACHET 1 MORNING, 1 NOON AND 1 EVENING (1 G/125 MG AD, PDR PR SUSP BUV)
     Route: 065
     Dates: start: 20160622
  28. KETOPROFEN [Suspect]
     Active Substance: KETOPROFEN
     Indication: Product used for unknown indication
     Dosage: 2 CAPSULES/DIE
     Route: 065
     Dates: start: 20170104
  29. ACUPAN [Suspect]
     Active Substance: NEFOPAM HYDROCHLORIDE
     Indication: Product used for unknown indication
     Dosage: 1 AMPOULE 3 TIMES A DAY
     Route: 065
     Dates: start: 20170904
  30. ACUPAN [Suspect]
     Active Substance: NEFOPAM HYDROCHLORIDE
     Dosage: UNKNOWN DOSAGE 3 TIMES A DAY
     Route: 065
     Dates: start: 20180109
  31. ACUPAN [Suspect]
     Active Substance: NEFOPAM HYDROCHLORIDE
     Dosage: 1 AMPOULE 3 TIMES A DAY
     Route: 065
     Dates: start: 20180212
  32. ACUPAN [Suspect]
     Active Substance: NEFOPAM HYDROCHLORIDE
     Dosage: 1 AMPOULE 3 TIMES A DAY
     Route: 065
     Dates: start: 20180426
  33. ACUPAN [Suspect]
     Active Substance: NEFOPAM HYDROCHLORIDE
     Dosage: UNKNOWN DOSAGE 3 TIMES A DAY
     Route: 065
     Dates: start: 20180523
  34. ACUPAN [Suspect]
     Active Substance: NEFOPAM HYDROCHLORIDE
     Dosage: 1 AMPOULE 3 TIMES A DAY
     Route: 065
     Dates: start: 20180828
  35. ACUPAN [Suspect]
     Active Substance: NEFOPAM HYDROCHLORIDE
     Dosage: 1 AMPOULE 3 TIMES A DAY
     Route: 065
     Dates: start: 20180904
  36. ACUPAN [Suspect]
     Active Substance: NEFOPAM HYDROCHLORIDE
     Dosage: 1 AMPOULE 3 TIMES A DAY
     Route: 065
     Dates: start: 20190520
  37. ACUPAN [Suspect]
     Active Substance: NEFOPAM HYDROCHLORIDE
     Dosage: 1 AMPOULE 3 TIMES A DAY AR 2 FOIS
     Route: 065
     Dates: start: 20181129
  38. ACUPAN [Suspect]
     Active Substance: NEFOPAM HYDROCHLORIDE
     Dosage: 1 AMPOULE 3 TIMES A DAY
     Route: 065
     Dates: start: 20190307
  39. ACUPAN [Suspect]
     Active Substance: NEFOPAM HYDROCHLORIDE
     Dosage: 1 AMPOULE 3 TIMES A DAY
     Route: 065
     Dates: start: 20190903
  40. ACUPAN [Suspect]
     Active Substance: NEFOPAM HYDROCHLORIDE
     Dosage: 1 AMPOULE 3X4 TIMES A DAY
     Route: 065
     Dates: start: 20200120
  41. ACUPAN [Suspect]
     Active Substance: NEFOPAM HYDROCHLORIDE
     Dosage: 1 AMPOULE 3 TIMES A DAY
     Route: 065
     Dates: start: 20200504
  42. ACUPAN [Suspect]
     Active Substance: NEFOPAM HYDROCHLORIDE
     Dosage: 1 AMPOULE 3 TIMES A DAY
     Route: 065
     Dates: start: 20200917
  43. AMITRIPTYLINE HYDROCHLORIDE [Suspect]
     Active Substance: AMITRIPTYLINE HYDROCHLORIDE
     Indication: Product used for unknown indication
     Dosage: 0.5 TABLET AT BEDTIME
     Route: 048
     Dates: start: 20170104
  44. AMITRIPTYLINE HYDROCHLORIDE [Suspect]
     Active Substance: AMITRIPTYLINE HYDROCHLORIDE
     Dosage: 1 TABLET AT BEDTIME
     Route: 048
     Dates: start: 20170111
  45. ACETAMINOPHEN\CODEINE PHOSPHATE [Suspect]
     Active Substance: ACETAMINOPHEN\CODEINE PHOSPHATE
     Indication: Product used for unknown indication
     Dosage: NOT ASSOCIATE WITH DOLIPRANE
     Route: 065
     Dates: start: 20160622
  46. CYAMEMAZINE [Suspect]
     Active Substance: CYAMEMAZINE
     Indication: Product used for unknown indication
     Dosage: 0.5 TABLET AT BEDTIME
     Route: 065
     Dates: start: 20171017
  47. CYAMEMAZINE [Suspect]
     Active Substance: CYAMEMAZINE
     Dosage: 1 TABLET AT BEDTIME
     Route: 065
     Dates: start: 20180109
  48. CYAMEMAZINE [Suspect]
     Active Substance: CYAMEMAZINE
     Dosage: 1 DOSAGE FORM AT BEDTIME
     Route: 065
     Dates: start: 20180212
  49. CYAMEMAZINE [Suspect]
     Active Substance: CYAMEMAZINE
     Dosage: UNKNOWN DOSAGE AT BEDTIME
     Route: 065
     Dates: start: 20180426
  50. CYAMEMAZINE [Suspect]
     Active Substance: CYAMEMAZINE
     Dosage: 1 DOSAGE FORM AT BEDTIME
     Route: 065
     Dates: start: 20181129
  51. CYAMEMAZINE [Suspect]
     Active Substance: CYAMEMAZINE
     Dosage: 1 DOSAGE FORM AT BEDTIME
     Route: 065
     Dates: start: 20180523
  52. CYAMEMAZINE [Suspect]
     Active Substance: CYAMEMAZINE
     Dosage: 1 DOSAGE FORM IN THE EVENING. ORDONNANCE A R 2/ FOIS.
     Route: 065
     Dates: start: 20210625
  53. CYAMEMAZINE [Suspect]
     Active Substance: CYAMEMAZINE
     Dosage: 1 TABLET IN THE EVENING
     Route: 065
     Dates: start: 20190307
  54. CYAMEMAZINE [Suspect]
     Active Substance: CYAMEMAZINE
     Dosage: IN THE EVENING
     Route: 065
     Dates: start: 20200504
  55. CYAMEMAZINE [Suspect]
     Active Substance: CYAMEMAZINE
     Dosage: 1 TABLET IN THE EVENING
     Route: 065
     Dates: start: 20201228
  56. CYAMEMAZINE [Suspect]
     Active Substance: CYAMEMAZINE
     Dosage: 1 DOSAGE FORM IN THE EVENING
     Route: 065
     Dates: start: 20220408
  57. CYAMEMAZINE [Suspect]
     Active Substance: CYAMEMAZINE
     Dosage: 1 DOSAGE FORM AT BEDTIME AR 2 FOIS
     Route: 065
     Dates: start: 20190829
  58. CYAMEMAZINE [Suspect]
     Active Substance: CYAMEMAZINE
     Dosage: 1 DOSAGE FORM IN THE EVENING
     Route: 065
     Dates: start: 20220121
  59. CYAMEMAZINE [Suspect]
     Active Substance: CYAMEMAZINE
     Dosage: 1 DOSAGE FORM IN THE EVENING AR 1 FOIS
     Route: 065
     Dates: start: 20191121
  60. CYAMEMAZINE [Suspect]
     Active Substance: CYAMEMAZINE
     Dosage: 1 DOSAGE FORM AT BEDTIME AR 2 FOIS
     Route: 065
     Dates: start: 20190520
  61. CYAMEMAZINE [Suspect]
     Active Substance: CYAMEMAZINE
     Dosage: IN THE EVENING A R 3/FOIS
     Route: 065
     Dates: start: 20200619
  62. CYAMEMAZINE [Suspect]
     Active Substance: CYAMEMAZINE
     Dosage: 1 DOSAGE FORM AT BEDTIME
     Route: 065
     Dates: start: 20180615
  63. CYAMEMAZINE [Suspect]
     Active Substance: CYAMEMAZINE
     Dosage: IN THE EVENING
     Route: 065
     Dates: start: 20200120
  64. CYAMEMAZINE [Suspect]
     Active Substance: CYAMEMAZINE
     Dosage: AR 6 MOIS
     Route: 065
     Dates: start: 20190903
  65. CYAMEMAZINE [Suspect]
     Active Substance: CYAMEMAZINE
     Dosage: 1 TABLET IN THE EVENING
     Route: 065
     Dates: start: 20210917
  66. CYAMEMAZINE [Suspect]
     Active Substance: CYAMEMAZINE
     Dosage: IN THE EVENING
     Route: 065
     Dates: start: 20200417
  67. CYAMEMAZINE [Suspect]
     Active Substance: CYAMEMAZINE
     Dosage: 1 DOSAGE FORM AT BEDTIME AR 3 FOIS
     Route: 065
     Dates: start: 20190222
  68. CYAMEMAZINE [Suspect]
     Active Substance: CYAMEMAZINE
     Dosage: 1 DOSAGE FORM AT BEDTIME AR 3 FOIS
     Route: 065
     Dates: start: 20190222
  69. CYAMEMAZINE [Suspect]
     Active Substance: CYAMEMAZINE
     Dosage: 1 DOSAGE FORM IN THE EVENING
     Route: 065
     Dates: start: 20220201
  70. CYAMEMAZINE [Suspect]
     Active Substance: CYAMEMAZINE
     Dosage: 1 DOSAGE FORM IN THE EVENING
     Route: 065
     Dates: start: 20210930
  71. CYAMEMAZINE [Suspect]
     Active Substance: CYAMEMAZINE
     Dosage: UNKNOWN DOSAGE IN THE EVENING
     Route: 065
     Dates: start: 20180116
  72. CYAMEMAZINE [Suspect]
     Active Substance: CYAMEMAZINE
     Dosage: 1 DOSAGE FORM AT BEDTIME
     Route: 065
     Dates: start: 20180904
  73. CYAMEMAZINE [Suspect]
     Active Substance: CYAMEMAZINE
     Dosage: 1 TABLET IN THE EVENING
     Route: 065
     Dates: start: 20180828
  74. CYAMEMAZINE [Suspect]
     Active Substance: CYAMEMAZINE
     Dosage: 1 TABLET IN THE EVENING
     Route: 065
     Dates: start: 20200917
  75. AMITRIPTYLINE HYDROCHLORIDE [Suspect]
     Active Substance: AMITRIPTYLINE HYDROCHLORIDE
     Indication: Product used for unknown indication
     Dosage: 40 MG, QD
     Route: 065
     Dates: start: 20200818
  76. AMITRIPTYLINE HYDROCHLORIDE [Suspect]
     Active Substance: AMITRIPTYLINE HYDROCHLORIDE
     Dosage: 30 DROPS IN THE EVENING
     Route: 065
     Dates: start: 20201228
  77. AMITRIPTYLINE HYDROCHLORIDE [Suspect]
     Active Substance: AMITRIPTYLINE HYDROCHLORIDE
     Dosage: 30 DROPS IN THE EVENING
     Route: 065
     Dates: start: 20210917
  78. AMITRIPTYLINE HYDROCHLORIDE [Suspect]
     Active Substance: AMITRIPTYLINE HYDROCHLORIDE
     Dosage: 30 DROPS IN THE EVENING
     Route: 065
     Dates: start: 20210930
  79. AMITRIPTYLINE HYDROCHLORIDE [Suspect]
     Active Substance: AMITRIPTYLINE HYDROCHLORIDE
     Dosage: 30 DROPS IN THE EVENING
     Route: 065
     Dates: start: 20220201
  80. AMITRIPTYLINE HYDROCHLORIDE [Suspect]
     Active Substance: AMITRIPTYLINE HYDROCHLORIDE
     Dosage: 30 DROPS AT BEDTIME
     Route: 065
     Dates: start: 20220408
  81. TRAMADOL [Suspect]
     Active Substance: TRAMADOL
     Indication: Product used for unknown indication
     Dosage: 1 CAPSULE/DIE
     Route: 065
     Dates: start: 20160616
  82. AMITRIPTYLINE HYDROCHLORIDE [Suspect]
     Active Substance: AMITRIPTYLINE HYDROCHLORIDE
     Indication: Product used for unknown indication
     Dosage: 1 TABLET AT BEDTIME
     Route: 065
     Dates: start: 20170330
  83. AMITRIPTYLINE HYDROCHLORIDE [Suspect]
     Active Substance: AMITRIPTYLINE HYDROCHLORIDE
     Dosage: 1 TABLET AT BEDTIME
     Route: 065
     Dates: start: 20170320
  84. AMITRIPTYLINE HYDROCHLORIDE [Suspect]
     Active Substance: AMITRIPTYLINE HYDROCHLORIDE
     Dosage: 50 MG, QD
     Route: 065
     Dates: start: 2017
  85. AMITRIPTYLINE HYDROCHLORIDE [Suspect]
     Active Substance: AMITRIPTYLINE HYDROCHLORIDE
     Dosage: 75 MG IN THE EVENING
     Route: 065
     Dates: start: 20170502
  86. AMITRIPTYLINE HYDROCHLORIDE [Suspect]
     Active Substance: AMITRIPTYLINE HYDROCHLORIDE
     Dosage: 75 MG IN THE EVENING
     Route: 065
     Dates: start: 20170904
  87. AMITRIPTYLINE HYDROCHLORIDE [Suspect]
     Active Substance: AMITRIPTYLINE HYDROCHLORIDE
     Dosage: 2 DOSAGE FORMS AT BEDTIME
     Route: 065
     Dates: start: 20180220
  88. ESOMEPRAZOLE [Suspect]
     Active Substance: ESOMEPRAZOLE
     Indication: Product used for unknown indication
     Dosage: 1 CP/DIE
     Route: 065
     Dates: start: 20170104
  89. TRAMADOL HYDROCHLORIDE [Suspect]
     Active Substance: TRAMADOL HYDROCHLORIDE
     Indication: Product used for unknown indication
     Dosage: 1 CP MORNING AND EVENING
     Route: 065
     Dates: start: 20170529
  90. TRAMADOL HYDROCHLORIDE [Suspect]
     Active Substance: TRAMADOL HYDROCHLORIDE
     Dosage: 1 CP MORNING, NOON AND EVENING
     Route: 065
     Dates: start: 20160704
  91. TRAMADOL HYDROCHLORIDE [Suspect]
     Active Substance: TRAMADOL HYDROCHLORIDE
     Dosage: 1 CP MORNING, NOON AND EVENING
     Route: 065
     Dates: start: 20161004
  92. TRAMADOL HYDROCHLORIDE [Suspect]
     Active Substance: TRAMADOL HYDROCHLORIDE
     Dosage: 1 CP MORNING, NOON AND EVENING (LP 100 TRAMADOL)
     Route: 065
     Dates: start: 20160722
  93. TRAMADOL HYDROCHLORIDE [Suspect]
     Active Substance: TRAMADOL HYDROCHLORIDE
     Dosage: 1 CP MORNING, NOON AND EVENING
     Route: 065
     Dates: start: 20160818
  94. INDOMETHACIN [Suspect]
     Active Substance: INDOMETHACIN
     Indication: Product used for unknown indication
     Dosage: 2 CAPSULES/DIE
     Route: 065
     Dates: start: 20170330
  95. PREDNISOLONE SODIUM METAZOATE [Suspect]
     Active Substance: PREDNISOLONE SODIUM METAZOATE
     Indication: Product used for unknown indication
     Dosage: 4 DOSAGE FORM
     Route: 065
     Dates: start: 20160617

REACTIONS (3)
  - Depression [Not Recovered/Not Resolved]
  - Diffuse axonal injury [Not Recovered/Not Resolved]
  - Amyotrophy [Not Recovered/Not Resolved]
